FAERS Safety Report 24406493 (Version 3)
Quarter: 2025Q2

REPORT INFORMATION
  Report Type: Report from Study
  Country: CA (occurrence: CA)
  Receive Date: 20241007
  Receipt Date: 20250523
  Transmission Date: 20250717
  Serious: Yes (Other)
  Sender: TAKEDA
  Company Number: CA-TAKEDA-2023TUS123979

PATIENT
  Age: 33 Year
  Sex: Male
  Weight: 55 kg

DRUGS (1)
  1. VEDOLIZUMAB [Suspect]
     Active Substance: VEDOLIZUMAB
     Indication: Crohn^s disease
     Dosage: 300 MILLIGRAM, Q4WEEKS
     Dates: start: 20231130

REACTIONS (4)
  - Arthralgia [Unknown]
  - Pericarditis [Not Recovered/Not Resolved]
  - Off label use [Unknown]
  - Vision blurred [Unknown]

NARRATIVE: CASE EVENT DATE: 20231130
